FAERS Safety Report 8847964 (Version 2)
Quarter: 2015Q2

REPORT INFORMATION
  Report Type: Report from Study
  Country: US (occurrence: US)
  Receive Date: 20121018
  Receipt Date: 20150421
  Transmission Date: 20150821
  Serious: Yes (Other)
  Sender: FDA-Public Use
  Company Number: US-ROCHE-1111118

PATIENT
  Sex: Male
  Weight: 26.9 kg

DRUGS (1)
  1. NUTROPIN [Suspect]
     Active Substance: SOMATROPIN
     Indication: DWARFISM
     Route: 058
     Dates: start: 19980119

REACTIONS (6)
  - Decreased appetite [Recovering/Resolving]
  - Contusion [Unknown]
  - Injection site pain [Unknown]
  - Haemorrhage [Unknown]
  - Cardiac murmur [Unknown]
  - Neoplasm [Unknown]
